FAERS Safety Report 9458320 (Version 1)
Quarter: 2013Q3

REPORT INFORMATION
  Report Type: Spontaneous
  Country: US (occurrence: US)
  Receive Date: 20130814
  Receipt Date: 20130814
  Transmission Date: 20140515
  Serious: No
  Sender: FDA-Public Use
  Company Number: US-BAYER-2013-096862

PATIENT
  Sex: Female

DRUGS (3)
  1. FINACEA [Suspect]
     Indication: ROSACEA
  2. METRONIDAZOLE [Concomitant]
  3. DOXYCYCLINE [Concomitant]
     Dosage: 150 MG, UNK

REACTIONS (2)
  - Burning sensation [None]
  - Product colour issue [None]
